FAERS Safety Report 4445792-0 (Version None)
Quarter: 2004Q3

REPORT INFORMATION
  Report Type: 
  Country: None (occurrence: None)
  Receive Date: 20040903
  Receipt Date: 20040824
  Transmission Date: 20050211
  Serious: Yes (Hospitalization)
  Sender: FDA-Public Use
  Company Number: 2004-BP-07411AU

PATIENT
  Age: 71 Year
  Sex: Female

DRUGS (7)
  1. ASASANTIN SR (CAPSULE, LONG ACTING) (KA) [Suspect]
     Dosage: 400MG/ 50 MG (SEE TEXT, 2 CAPSULES DAILY (STRENGTH: 200 MG/25MG) )
     Route: 048
  2. APRINOX (BENDROFLUMETHIAZIDE) (NR) [Suspect]
  3. ATENOLOL [Suspect]
  4. SIMVASTATIN (NR) [Concomitant]
  5. RAMIPRIL [Concomitant]
  6. POTASSIUM [Concomitant]
  7. ACETAMINOPHEN [Concomitant]

REACTIONS (3)
  - BRADYCARDIA [None]
  - HEADACHE [None]
  - HYPOKALAEMIA [None]
